FAERS Safety Report 17014274 (Version 2)
Quarter: 2019Q4

REPORT INFORMATION
  Report Type: Spontaneous
  Country: GB (occurrence: GB)
  Receive Date: 20191111
  Receipt Date: 20191128
  Transmission Date: 20200122
  Serious: Yes (Death, Life-Threatening, Hospitalization, Other)
  Sender: FDA-Public Use
  Company Number: GB-ADVANZ PHARMA-201910001502

PATIENT

DRUGS (6)
  1. TENOFOVIR [Concomitant]
     Active Substance: TENOFOVIR
     Dosage: UNK
  2. PREDNISOLONE. [Suspect]
     Active Substance: PREDNISOLONE
     Indication: IMMUNOSUPPRESSANT DRUG THERAPY
     Dosage: 10 MG, QD
  3. PREDNISOLONE. [Suspect]
     Active Substance: PREDNISOLONE
     Dosage: TAKING PREDNISOLONE AT GREATER THAN THE PRESCRIBED DOSE
  4. ALLOPURINOL. [Concomitant]
     Active Substance: ALLOPURINOL
     Dosage: 100 MG, QD
  5. ASACOL [Concomitant]
     Active Substance: MESALAMINE
     Dosage: 2 MG, QD
  6. AZATHIOPRINE. [Suspect]
     Active Substance: AZATHIOPRINE
     Indication: IMMUNOSUPPRESSANT DRUG THERAPY
     Dosage: 150 MG, QD

REACTIONS (15)
  - Colitis [Fatal]
  - Septic shock [Fatal]
  - Haemophagocytic lymphohistiocytosis [Fatal]
  - Histoplasmosis disseminated [Fatal]
  - Septal panniculitis [Fatal]
  - Leukopenia [Fatal]
  - Orchitis [Fatal]
  - Coagulopathy [Fatal]
  - Thrombocytopenia [Fatal]
  - Disseminated cytomegaloviral infection [Fatal]
  - Intestinal mass [Fatal]
  - Intentional product use issue [Fatal]
  - Panniculitis lobular [Fatal]
  - Pneumonia [Fatal]
  - Candida infection [Fatal]
